FAERS Safety Report 21421186 (Version 1)
Quarter: 2022Q4

REPORT INFORMATION
  Report Type: Report from Study
  Country: IN (occurrence: IN)
  Receive Date: 20221007
  Receipt Date: 20221007
  Transmission Date: 20230113
  Serious: Yes (Hospitalization, Other)
  Sender: FDA-Public Use
  Company Number: IN-BRISTOL-MYERS SQUIBB COMPANY-BMS-2022-004711

PATIENT
  Age: 54 Year
  Sex: Male
  Weight: 86.5 kg

DRUGS (1)
  1. NIVOLUMAB [Suspect]
     Active Substance: NIVOLUMAB
     Indication: Renal cell carcinoma
     Dosage: ACE2600, ACD3401
     Route: 042
     Dates: start: 20201103

REACTIONS (3)
  - Urinary tract infection [Unknown]
  - General physical condition abnormal [Unknown]
  - Urinary retention [Unknown]
